FAERS Safety Report 5164779-6 (Version None)
Quarter: 2006Q4

REPORT INFORMATION
  Report Type: 
  Country: None (occurrence: None)
  Receive Date: 20061124
  Receipt Date: 20061109
  Transmission Date: 20070319
  Serious: Yes (Other)
  Sender: FDA-Public Use
  Company Number: 227527

PATIENT
  Age: 56 Year
  Sex: Female
  Weight: 133.8 kg

DRUGS (8)
  1. HERCEPTIN [Suspect]
     Indication: BREAST CANCER METASTATIC
     Dosage: 6 MG/KG, Q3W, INTRAVENOUS
     Route: 042
     Dates: start: 20010420
  2. LETROZOLE [Suspect]
     Indication: BREAST CANCER METASTATIC
     Dosage: 2.5 MG, QD, ORAL
     Route: 048
     Dates: start: 20010420
  3. LOTENSIN [Concomitant]
  4. ZYRTEC [Concomitant]
  5. HYDROCHLOROTHIAZIDE [Concomitant]
  6. NEXIUM [Concomitant]
  7. DETROL LA (TOLTERODINE TARTRATE) [Concomitant]
  8. TYLENOL (CAPLET) [Concomitant]

REACTIONS (11)
  - ARTHROPOD BITE [None]
  - CELLULITIS [None]
  - DRUG HYPERSENSITIVITY [None]
  - EPSTEIN-BARR VIRUS ANTIBODY POSITIVE [None]
  - HYPERTENSION [None]
  - MUSCLE STRAIN [None]
  - MYELODYSPLASTIC SYNDROME [None]
  - MYELOPROLIFERATIVE DISORDER [None]
  - OBESITY [None]
  - RHINITIS ALLERGIC [None]
  - SINUSITIS [None]
